FAERS Safety Report 5871992-9 (Version None)
Quarter: 2008Q3

REPORT INFORMATION
  Report Type: 
  Country: None (occurrence: None)
  Receive Date: 20080902
  Receipt Date: 20080818
  Transmission Date: 20090109
  Serious: Yes (Hospitalization)
  Sender: FDA-Public Use
  Company Number: DSJ-2008-09661

PATIENT
  Age: 71 Year
  Sex: Female
  Weight: 64 kg

DRUGS (11)
  1. OLMESARTAN MEDOXOMIL [Suspect]
     Indication: ESSENTIAL HYPERTENSION
     Dosage: 20 MG (20 MG, 1 IN 1 D), PER ORAL; 40 MG (40 MG, 1 IN 1 D), PER ORAL
     Route: 048
     Dates: start: 20051122, end: 20060130
  2. OLMESARTAN MEDOXOMIL [Suspect]
     Indication: ESSENTIAL HYPERTENSION
     Dosage: 20 MG (20 MG, 1 IN 1 D), PER ORAL; 40 MG (40 MG, 1 IN 1 D), PER ORAL
     Route: 048
     Dates: start: 20060131, end: 20060803
  3. OLMESARTAN MEDOXOMIL [Suspect]
     Indication: ESSENTIAL HYPERTENSION
     Dosage: 20 MG (20 MG, 1 IN 1 D), PER ORAL; 40 MG (40 MG, 1 IN 1 D), PER ORAL
     Route: 048
     Dates: start: 20060804, end: 20060925
  4. OLMESARTAN MEDOXOMIL [Suspect]
     Indication: ESSENTIAL HYPERTENSION
     Dosage: 20 MG (20 MG, 1 IN 1 D), PER ORAL; 40 MG (40 MG, 1 IN 1 D), PER ORAL
     Route: 048
     Dates: start: 20060926, end: 20080714
  5. OLMESARTAN MEDOXOMIL [Suspect]
     Indication: ESSENTIAL HYPERTENSION
     Dosage: 20 MG (20 MG, 1 IN 1 D), PER ORAL; 40 MG (40 MG, 1 IN 1 D), PER ORAL
     Route: 048
     Dates: start: 20080715
  6. CALBLOCK (AZELNIDIPINE) (TABLET) (AZELNIDIPINE) [Concomitant]
  7. CERCINE (DIAZEPAM) (DIAZEPAM) [Concomitant]
  8. INFLUENZA HA VACCINE (INFLUENZA VIRUS VACCINE POLYVALENT) (INFLUENZA V [Concomitant]
  9. LIPITOR [Concomitant]
  10. PL (CAFFEINE, SALICYLAMIDE, PARACETAMOL, PROMETHAZINE METHYLENE DISALI [Concomitant]
  11. ISODINE GARGLE (POVIDONE-IODINE) (GARGLE) (POVIDONE-IODINE) [Concomitant]

REACTIONS (1)
  - ATRIAL FIBRILLATION [None]
